FAERS Safety Report 23544615 (Version 1)
Quarter: 2024Q1

REPORT INFORMATION
  Report Type: Spontaneous
  Country: US (occurrence: US)
  Receive Date: 20240220
  Receipt Date: 20240220
  Transmission Date: 20240409
  Serious: Yes (Other)
  Sender: FDA-Public Use
  Company Number: US-DRL-USA-LIT/USA/24/0003009

PATIENT
  Age: 49 Year
  Sex: Male

DRUGS (7)
  1. SORAFENIB [Suspect]
     Active Substance: SORAFENIB
     Indication: Malignant sweat gland neoplasm
  2. GEMCITABINE [Suspect]
     Active Substance: GEMCITABINE
     Indication: Malignant sweat gland neoplasm
  3. CYCLOPHOSPHAMIDE [Suspect]
     Active Substance: CYCLOPHOSPHAMIDE
     Indication: Malignant sweat gland neoplasm
  4. PACLITAXEL [Suspect]
     Active Substance: PACLITAXEL
     Indication: Malignant sweat gland neoplasm
  5. FLUOROURACIL\OXALIPLATIN [Suspect]
     Active Substance: FLUOROURACIL\OXALIPLATIN
     Indication: Malignant sweat gland neoplasm
  6. BEVACIZUMAB [Suspect]
     Active Substance: BEVACIZUMAB
  7. CARBOPLATIN [Suspect]
     Active Substance: CARBOPLATIN

REACTIONS (3)
  - Disease progression [Unknown]
  - Treatment failure [Unknown]
  - Adverse event [Unknown]
